FAERS Safety Report 9753443 (Version 2)
Quarter: 2013Q4

REPORT INFORMATION
  Report Type: Spontaneous
  Country: US (occurrence: US)
  Receive Date: 20131213
  Receipt Date: 20131216
  Transmission Date: 20140711
  Serious: Yes (Other)
  Sender: FDA-Public Use
  Company Number: US-TEVA-404300USA

PATIENT
  Age: 26 Year
  Sex: Female
  Weight: 51.3 kg

DRUGS (2)
  1. PARAGARD 380A [Suspect]
     Indication: CONTRACEPTION
     Route: 015
     Dates: start: 201203, end: 20130508
  2. PARAGARD 380A [Suspect]
     Route: 015
     Dates: start: 20130508

REACTIONS (6)
  - Device dislocation [Recovered/Resolved]
  - Metrorrhagia [Unknown]
  - Uterine spasm [Unknown]
  - Vaginal discharge [Unknown]
  - Metrorrhagia [Unknown]
  - Dysfunctional uterine bleeding [Unknown]
